FAERS Safety Report 16764470 (Version 1)
Quarter: 2019Q3

REPORT INFORMATION
  Report Type: Spontaneous
  Country: FR (occurrence: FR)
  Receive Date: 20190902
  Receipt Date: 20190902
  Transmission Date: 20191005
  Serious: Yes (Hospitalization)
  Sender: FDA-Public Use
  Company Number: FR-ROCHE-2393018

PATIENT
  Age: 56 Year
  Sex: Female
  Weight: 39 kg

DRUGS (4)
  1. ENDOXAN [CYCLOPHOSPHAMIDE] [Suspect]
     Active Substance: CYCLOPHOSPHAMIDE
     Indication: B-CELL LYMPHOMA
     Dosage: MOST RECENT DOSE ON 14/FEB/2019
     Route: 042
     Dates: start: 20181025
  2. VINCRISTINE HOSPIRA [Suspect]
     Active Substance: VINCRISTINE
     Indication: B-CELL LYMPHOMA
     Dosage: MOST RECENT DOSE ON 14/FEB/2019
     Route: 042
     Dates: start: 20181025
  3. DOXORUBICINE TEVA [Suspect]
     Active Substance: DOXORUBICIN
     Indication: B-CELL LYMPHOMA
     Dosage: MOST RECENT DOSE ON 14/FEB/2019
     Route: 042
     Dates: start: 20181025
  4. MABTHERA [Suspect]
     Active Substance: RITUXIMAB
     Indication: B-CELL LYMPHOMA
     Route: 042
     Dates: start: 20181025, end: 20190429

REACTIONS (1)
  - Obliterative bronchiolitis [Not Recovered/Not Resolved]

NARRATIVE: CASE EVENT DATE: 201901
